FAERS Safety Report 5620561-4 (Version None)
Quarter: 2008Q1

REPORT INFORMATION
  Report Type: 
  Country: None (occurrence: None)
  Receive Date: 20080208
  Receipt Date: 20080201
  Transmission Date: 20080703
  Serious: Yes (Hospitalization)
  Sender: FDA-Public Use
  Company Number: VE-ABBOTT-08P-178-0433737-00

PATIENT
  Sex: Female
  Weight: 63 kg

DRUGS (1)
  1. HUMIRA [Suspect]
     Indication: RHEUMATOID ARTHRITIS
     Route: 058
     Dates: start: 20070918, end: 20071201

REACTIONS (3)
  - HAEMORRHAGIC STROKE [None]
  - HYPERTENSIVE CRISIS [None]
  - SUBDURAL HAEMATOMA [None]
